FAERS Safety Report 17604532 (Version 1)
Quarter: 2020Q1

REPORT INFORMATION
  Report Type: Spontaneous
  Country: GB (occurrence: GB)
  Receive Date: 20200331
  Receipt Date: 20200331
  Transmission Date: 20200409
  Serious: Yes (Other)
  Sender: FDA-Public Use
  Company Number: GB-PFIZER INC-2020130681

PATIENT
  Age: 25 Year
  Sex: Female
  Weight: 103.86 kg

DRUGS (1)
  1. SAYANA PRESS [Suspect]
     Active Substance: MEDROXYPROGESTERONE\MEDROXYPROGESTERONE ACETATE
     Indication: CONTRACEPTION
     Dosage: 1 DF, UNK
     Route: 051
     Dates: start: 20170101, end: 20190601

REACTIONS (4)
  - Muscle atrophy [Unknown]
  - Injection site indentation [Recovered/Resolved with Sequelae]
  - Lipoatrophy [Unknown]
  - Skin atrophy [Unknown]

NARRATIVE: CASE EVENT DATE: 20170701
